FAERS Safety Report 16607492 (Version 1)
Quarter: 2019Q3

REPORT INFORMATION
  Report Type: Spontaneous
  Country: US (occurrence: US)
  Receive Date: 20190722
  Receipt Date: 20190722
  Transmission Date: 20191004
  Serious: No
  Sender: FDA-Public Use
  Company Number: US-009507513-1906USA011179

PATIENT
  Sex: Female

DRUGS (1)
  1. ASMANEX [Suspect]
     Active Substance: MOMETASONE FUROATE
     Dosage: 2 PUFFS
     Route: 055

REACTIONS (3)
  - No adverse event [Unknown]
  - Wrong technique in device usage process [Unknown]
  - Accidental overdose [Unknown]

NARRATIVE: CASE EVENT DATE: 20190612
